FAERS Safety Report 9888340 (Version 1)
Quarter: 2014Q1

REPORT INFORMATION
  Report Type: Spontaneous
  Country: GB (occurrence: GB)
  Receive Date: 20140211
  Receipt Date: 20140211
  Transmission Date: 20141002
  Serious: Yes (Hospitalization)
  Sender: FDA-Public Use
  Company Number: GB-B.I. PHARMACEUTICALS,INC./RIDGEFIELD-2014-BI-05840UK

PATIENT
  Age: 86 Year
  Sex: Male
  Weight: 56.8 kg

DRUGS (5)
  1. PRADAXA [Suspect]
     Indication: ARRHYTHMIA PROPHYLAXIS
     Dosage: 220 MG
     Route: 048
     Dates: start: 201204, end: 20140127
  2. DIGOXIN [Concomitant]
  3. FUROSEMIDE [Concomitant]
  4. OMEPRAZOLE [Concomitant]
  5. PARACETAMOL [Concomitant]

REACTIONS (5)
  - Pulmonary embolism [Recovered/Resolved]
  - Chest pain [Unknown]
  - Dyspnoea [Unknown]
  - Treatment failure [Unknown]
  - Incorrect product storage [Unknown]
